FAERS Safety Report 7076576-5 (Version None)
Quarter: 2010Q4

REPORT INFORMATION
  Report Type: 
  Country: None (occurrence: None)
  Receive Date: 20101022
  Receipt Date: 20101013
  Transmission Date: 20110411
  Serious: Yes (Other)
  Sender: FDA-Public Use
  Company Number: JPI-P-012580

PATIENT
  Age: 18 Year
  Sex: Female
  Weight: 45.3597 kg

DRUGS (6)
  1. XYREM [Suspect]
     Indication: NARCOLEPSY
     Dosage: (5 GM (2.5 GM, 2 IN 1 D)), (6 GM (3 GM, 2 IN 1 D)), (3 GM FIRST DOSE/2 GM SECOND DOSE) ORAL
     Route: 048
     Dates: start: 20100815, end: 20100101
  2. XYREM [Suspect]
     Indication: NARCOLEPSY
     Dosage: (5 GM (2.5 GM, 2 IN 1 D)), (6 GM (3 GM, 2 IN 1 D)), (3 GM FIRST DOSE/2 GM SECOND DOSE) ORAL
     Route: 048
     Dates: start: 20100729, end: 20100814
  3. XYREM [Suspect]
     Indication: NARCOLEPSY
     Dosage: (5 GM (2.5 GM, 2 IN 1 D)), (6 GM (3 GM, 2 IN 1 D)), (3 GM FIRST DOSE/2 GM SECOND DOSE) ORAL
     Route: 048
     Dates: start: 20100101
  4. DROSPIRENONE AND ETHINYL ESTRADIOL [Concomitant]
  5. MODAFINIL [Concomitant]
  6. HYOSCYAMINE [Concomitant]

REACTIONS (8)
  - CLAVICLE FRACTURE [None]
  - FATIGUE [None]
  - FEELING JITTERY [None]
  - JOINT SPRAIN [None]
  - LETHARGY [None]
  - RETCHING [None]
  - ROAD TRAFFIC ACCIDENT [None]
  - SOMNOLENCE [None]
